FAERS Safety Report 22162116 (Version 5)
Quarter: 2023Q2

REPORT INFORMATION
  Report Type: Report from Study
  Country: CA (occurrence: CA)
  Receive Date: 20230331
  Receipt Date: 20230622
  Transmission Date: 20230722
  Serious: Yes (Other)
  Sender: FDA-Public Use
  Company Number: CA-JAZZ PHARMACEUTICALS-2023-CA-007044

PATIENT
  Age: 80 Year
  Sex: Male
  Weight: 91.3 kg

DRUGS (6)
  1. LURBINECTEDIN [Suspect]
     Active Substance: LURBINECTEDIN
     Indication: Small cell lung cancer
     Dosage: 3.2 MILLIGRAM/SQ. METER Q3 WEEKS
     Route: 042
     Dates: start: 20221115, end: 20230228
  2. BREO ELLIPTA [Concomitant]
     Active Substance: FLUTICASONE FUROATE\VILANTEROL TRIFENATATE
     Dosage: 25-100 CG
     Route: 042
     Dates: start: 2019
  3. DILAUDID [Concomitant]
     Active Substance: HYDROMORPHONE HYDROCHLORIDE
     Dosage: 0.5 MILLIGRAM, PRN
     Route: 048
     Dates: start: 20220718
  4. SODIUM CHLORATE [Concomitant]
     Active Substance: SODIUM CHLORATE
     Dosage: 1000 MILLIGRAM, QID
     Route: 048
     Dates: start: 20221103
  5. RELAXA [MACROGOL 3350] [Concomitant]
     Dosage: 17 GRAM, PRN
     Route: 048
     Dates: start: 202207
  6. XARELTO [Concomitant]
     Active Substance: RIVAROXABAN
     Dosage: 20 MILLIGRAM, QD
     Route: 048
     Dates: start: 20221229

REACTIONS (1)
  - Injection site reaction [Not Recovered/Not Resolved]

NARRATIVE: CASE EVENT DATE: 20230228
